FAERS Safety Report 12483020 (Version 1)
Quarter: 2016Q2

REPORT INFORMATION
  Report Type: Spontaneous
  Country: US (occurrence: US)
  Receive Date: 20160620
  Receipt Date: 20160620
  Transmission Date: 20160815
  Serious: No
  Sender: FDA-Public Use
  Company Number: US-ASTRAZENECA-2016SE60354

PATIENT
  Sex: Male

DRUGS (1)
  1. BRILINTA [Suspect]
     Active Substance: TICAGRELOR
     Indication: ACUTE CORONARY SYNDROME
     Dosage: 90.0MG UNKNOWN
     Route: 048
     Dates: start: 201604

REACTIONS (3)
  - Dizziness [Unknown]
  - Disturbance in attention [Unknown]
  - Balance disorder [Unknown]

NARRATIVE: CASE EVENT DATE: 20160525
